FAERS Safety Report 24713906 (Version 1)
Quarter: 2024Q4

REPORT INFORMATION
  Report Type: Spontaneous
  Country: US (occurrence: US)
  Receive Date: 20241209
  Receipt Date: 20241209
  Transmission Date: 20250115
  Serious: No
  Sender: REGENERON
  Company Number: US-REGENERON PHARMACEUTICALS, INC.-2024-076504

PATIENT
  Sex: Male

DRUGS (2)
  1. EYLEA [Suspect]
     Active Substance: AFLIBERCEPT
     Indication: Neovascular age-related macular degeneration
     Dosage: 2 MG, EVERY 11 TO 12 WEEKS, RIGHT EYE, FORMULATION: PFS GERRESHEIMER, STRENGTH: 2MG/0.05ML
     Dates: start: 20210622
  2. EYLEA [Suspect]
     Active Substance: AFLIBERCEPT
     Indication: Choroidal neovascularisation

REACTIONS (1)
  - Scleral deposits [Recovered/Resolved]

NARRATIVE: CASE EVENT DATE: 20240514
